FAERS Safety Report 5806505-0 (Version None)
Quarter: 2008Q3

REPORT INFORMATION
  Report Type: 
  Country: None (occurrence: None)
  Receive Date: 20080710
  Receipt Date: 20080701
  Transmission Date: 20090109
  Serious: Yes (Other)
  Sender: FDA-Public Use
  Company Number: US-PFIZER INC-2008055718

PATIENT
  Sex: Male
  Weight: 113.63 kg

DRUGS (1)
  1. DETROL LA [Suspect]
     Indication: NOCTURIA

REACTIONS (1)
  - FLUID RETENTION [None]
